FAERS Safety Report 25661840 (Version 2)
Quarter: 2025Q3

REPORT INFORMATION
  Report Type: Spontaneous
  Country: EU (occurrence: EU)
  Receive Date: 20250809
  Receipt Date: 20250902
  Transmission Date: 20251020
  Serious: Yes (Other)
  Sender: MERCK SHARP & DOHME LLC
  Company Number: EU-VIIV HEALTHCARE-PT2025EME092278

PATIENT
  Age: 57 Year
  Sex: Male

DRUGS (11)
  1. DORAVIRINE [Suspect]
     Active Substance: DORAVIRINE
     Indication: HIV infection
     Dates: start: 202302
  2. DOLUTEGRAVIR SODIUM\RILPIVIRINE HYDROCHLORIDE [Suspect]
     Active Substance: DOLUTEGRAVIR SODIUM\RILPIVIRINE HYDROCHLORIDE
     Indication: HIV infection
  3. ATORVASTATIN; EZETIMIB [Concomitant]
     Indication: Hypertension
     Dosage: 1 DF, QD
  4. DOLUTEGRAVIR [Suspect]
     Active Substance: DOLUTEGRAVIR
     Indication: HIV infection
     Dates: start: 202312
  5. SITAGLIPTIN [Concomitant]
     Active Substance: SITAGLIPTIN
     Indication: Diabetes mellitus
  6. ACETAMINOPHEN\TRAMADOL [Concomitant]
     Active Substance: ACETAMINOPHEN\TRAMADOL
     Indication: Product used for unknown indication
  7. DARUNAVIR [Suspect]
     Active Substance: DARUNAVIR
     Indication: HIV infection
     Dosage: 600 MG, BID
  8. FELODIPINE; RAMIPRIL [Concomitant]
     Indication: Hypertension
     Dosage: 1 DF, QD, 5/5MG
  9. RITONAVIR [Suspect]
     Active Substance: RITONAVIR
     Indication: HIV infection
  10. INSULIN DETEMIR [Concomitant]
     Active Substance: INSULIN DETEMIR
     Indication: Diabetes mellitus
  11. FENOFIBRATE [Concomitant]
     Active Substance: FENOFIBRATE
     Indication: Hypertension

REACTIONS (6)
  - Renal impairment [Unknown]
  - Product dose omission issue [Unknown]
  - Odynophagia [Unknown]
  - Blood HIV RNA increased [Recovering/Resolving]
  - Product use in unapproved therapeutic environment [Unknown]
  - Viral mutation identified [Unknown]
